FAERS Safety Report 22902342 (Version 2)
Quarter: 2023Q4

REPORT INFORMATION
  Report Type: Spontaneous
  Country: US (occurrence: US)
  Receive Date: 20230904
  Receipt Date: 20231102
  Transmission Date: 20240109
  Serious: No
  Sender: FDA-Public Use
  Company Number: US-SANDOZ-SDZ2023US022424

PATIENT
  Age: 27 Year
  Sex: Female
  Weight: 104.33 kg

DRUGS (1)
  1. ESTRADIOL [Suspect]
     Active Substance: ESTRADIOL
     Indication: Oestrogen therapy
     Dosage: 0.1 MG N/A DOSE EVERY N/A N/A
     Route: 062
     Dates: start: 20210904

REACTIONS (4)
  - Blood oestrogen decreased [Recovering/Resolving]
  - Menopausal symptoms [Unknown]
  - Product adhesion issue [Unknown]
  - Product physical issue [Unknown]

NARRATIVE: CASE EVENT DATE: 20230715
